FAERS Safety Report 5258760-6 (Version None)
Quarter: 2007Q1

REPORT INFORMATION
  Report Type: 
  Country: None (occurrence: None)
  Receive Date: 20061117
  Receipt Date: 20060109
  Transmission Date: 20070707
  Serious: Yes (Disabling)
  Sender: FDA-Public Use
  Company Number: US-JNJFOC-20060101966

PATIENT
  Age: 64 Year
  Sex: Female
  Weight: 69.4003 kg

DRUGS (1)
  1. LEVAQUIN [Suspect]
     Indication: ULCER
     Dosage: 500 MG, 1 IN 1 DAY, ORAL
     Route: 048
     Dates: start: 20050901, end: 20050901

REACTIONS (2)
  - JOINT RANGE OF MOTION DECREASED [None]
  - MUSCULOSKELETAL PAIN [None]
